FAERS Safety Report 12168378 (Version 2)
Quarter: 2016Q1

REPORT INFORMATION
  Report Type: Report from Study
  Country: BR (occurrence: BR)
  Receive Date: 20160310
  Receipt Date: 20160311
  Transmission Date: 20160526
  Serious: Yes (Death, Hospitalization)
  Sender: FDA-Public Use
  Company Number: BR-UCBSA-2016008366

PATIENT
  Sex: Female

DRUGS (5)
  1. DIPYRONE [Concomitant]
     Active Substance: DIPYRONE
     Indication: PRODUCT USED FOR UNKNOWN INDICATION
     Dosage: UNK
  2. AMOXIL [Concomitant]
     Active Substance: AMOXICILLIN
     Indication: GASTRIC INFECTION
     Dosage: UNK
     Dates: start: 20160224
  3. NISTATIN [Concomitant]
     Active Substance: NYSTATIN
     Indication: GASTRIC INFECTION
     Dosage: UNK
     Dates: start: 20160224
  4. RANITIDINE [Concomitant]
     Active Substance: RANITIDINE\RANITIDINE HYDROCHLORIDE
     Indication: PRODUCT USED FOR UNKNOWN INDICATION
     Dosage: UNK
  5. CERTOLIZUMAB PEGOL [Suspect]
     Active Substance: CERTOLIZUMAB PEGOL
     Indication: RHEUMATOID ARTHRITIS
     Dosage: 200 MG, UNK
     Route: 058
     Dates: start: 2015

REACTIONS (5)
  - Malaise [Unknown]
  - Hypovolaemic shock [Fatal]
  - Vomiting [Unknown]
  - Gastric infection [Unknown]
  - Upper gastrointestinal haemorrhage [Fatal]

NARRATIVE: CASE EVENT DATE: 20160214
